FAERS Safety Report 18283877 (Version 1)
Quarter: 2020Q3

REPORT INFORMATION
  Report Type: Spontaneous
  Country: US (occurrence: US)
  Receive Date: 20200918
  Receipt Date: 20200918
  Transmission Date: 20201103
  Serious: No
  Sender: FDA-Public Use
  Company Number: US-JNJFOC-20200918814

PATIENT
  Age: 60 Year
  Sex: Female

DRUGS (1)
  1. SYMTUZA [Suspect]
     Active Substance: COBICISTAT\DARUNAVIR\EMTRICITABINE\TENOFOVIR ALAFENAMIDE
     Indication: HIV INFECTION
     Dosage: 800/150/200/10 MILLIGRAMS
     Route: 048
     Dates: start: 20200727, end: 20200909

REACTIONS (3)
  - Chest discomfort [Unknown]
  - Swelling [Unknown]
  - Formication [Unknown]

NARRATIVE: CASE EVENT DATE: 20200909
